FAERS Safety Report 19273293 (Version 2)
Quarter: 2021Q3

REPORT INFORMATION
  Report Type: Spontaneous
  Country: JP (occurrence: JP)
  Receive Date: 20210519
  Receipt Date: 20210927
  Transmission Date: 20211014
  Serious: Yes (Other)
  Sender: FDA-Public Use
  Company Number: PHJP2016JP034320

PATIENT
  Age: 21 Day
  Sex: Male

DRUGS (3)
  1. AFINITOR [Suspect]
     Active Substance: EVEROLIMUS
     Indication: ASTROCYTOMA, LOW GRADE
     Dosage: 1.25 MG, QD
     Route: 048
  2. AFINITOR [Suspect]
     Active Substance: EVEROLIMUS
     Dosage: 0.15 MG
     Route: 048
  3. AFINITOR [Suspect]
     Active Substance: EVEROLIMUS
     Dosage: 0.6 MG
     Route: 048

REACTIONS (6)
  - Product use issue [Unknown]
  - Tuberous sclerosis complex associated neuropsychiatric disease [Unknown]
  - Stomatitis [Recovering/Resolving]
  - Partial seizures [Unknown]
  - Blood triglycerides increased [Recovered/Resolved]
  - Overdose [Unknown]
